FAERS Safety Report 22524329 (Version 2)
Quarter: 2023Q2

REPORT INFORMATION
  Report Type: Spontaneous
  Country: AT (occurrence: AT)
  Receive Date: 20230606
  Receipt Date: 20230630
  Transmission Date: 20230722
  Serious: Yes (Other)
  Sender: FDA-Public Use
  Company Number: AT-ROCHE-3358395

PATIENT
  Age: 51 Year
  Sex: Male
  Weight: 73 kg

DRUGS (20)
  1. DEXAMETHASONE [Suspect]
     Active Substance: DEXAMETHASONE
     Indication: Follicular lymphoma
     Route: 065
     Dates: start: 202005, end: 202006
  2. DOXORUBICIN [Suspect]
     Active Substance: DOXORUBICIN
     Indication: Follicular lymphoma
     Route: 065
     Dates: start: 201812, end: 201905
  3. VINCRISTINE [Suspect]
     Active Substance: VINCRISTINE
     Indication: Follicular lymphoma
     Route: 065
     Dates: start: 201812, end: 201905
  4. ETOPOSIDE [Suspect]
     Active Substance: ETOPOSIDE
     Indication: Follicular lymphoma
     Route: 065
     Dates: start: 202005, end: 202006
  5. CYTARABINE [Suspect]
     Active Substance: CYTARABINE
     Indication: Follicular lymphoma
     Route: 065
     Dates: start: 202005, end: 202006
  6. GEMCITABINE [Suspect]
     Active Substance: GEMCITABINE
     Indication: Follicular lymphoma
     Route: 065
     Dates: start: 202005, end: 202006
  7. PREDNISONE [Suspect]
     Active Substance: PREDNISONE
     Indication: Follicular lymphoma
     Route: 065
     Dates: start: 201812, end: 201905
  8. LEUSTATIN [Suspect]
     Active Substance: CLADRIBINE
     Indication: Follicular lymphoma
     Route: 065
     Dates: start: 1994, end: 1994
  9. YESCARTA [Suspect]
     Active Substance: AXICABTAGENE CILOLEUCEL
     Indication: Follicular lymphoma
     Route: 065
     Dates: start: 202203, end: 202203
  10. CISPLATIN [Suspect]
     Active Substance: CISPLATIN
     Indication: Follicular lymphoma
     Route: 065
     Dates: start: 202005, end: 202006
  11. CARMUSTINE [Suspect]
     Active Substance: CARMUSTINE
     Indication: Follicular lymphoma
     Route: 065
     Dates: start: 202005, end: 202006
  12. RITUXIMAB [Suspect]
     Active Substance: RITUXIMAB
     Indication: Follicular lymphoma
     Route: 065
     Dates: start: 202005, end: 202006
  13. RITUXIMAB [Suspect]
     Active Substance: RITUXIMAB
     Route: 065
     Dates: start: 201812, end: 201905
  14. CYCLOPHOSPHAMIDE [Suspect]
     Active Substance: CYCLOPHOSPHAMIDE
     Indication: Follicular lymphoma
     Route: 065
     Dates: start: 201812, end: 201905
  15. MELPHALAN [Suspect]
     Active Substance: MELPHALAN
     Indication: Follicular lymphoma
     Route: 065
     Dates: start: 202005, end: 202006
  16. IBUPROFEN [Concomitant]
     Active Substance: IBUPROFEN
     Indication: Product used for unknown indication
  17. CHOLECALCIFEROL [Concomitant]
     Active Substance: CHOLECALCIFEROL
     Indication: Product used for unknown indication
  18. ACETAMINOPHEN [Concomitant]
     Active Substance: ACETAMINOPHEN
     Indication: Product used for unknown indication
  19. TAMSULOSIN [Concomitant]
     Active Substance: TAMSULOSIN
     Indication: Product used for unknown indication
  20. MILNACIPRAN HYDROCHLORIDE [Concomitant]
     Active Substance: MILNACIPRAN HYDROCHLORIDE
     Indication: Product used for unknown indication

REACTIONS (2)
  - Disease progression [Unknown]
  - Metastatic lymphoma [Unknown]

NARRATIVE: CASE EVENT DATE: 20200201
